FAERS Safety Report 11857745 (Version 1)
Quarter: 2015Q4

REPORT INFORMATION
  Report Type: Spontaneous
  Country: US (occurrence: None)
  Receive Date: 20151221
  Receipt Date: 20151221
  Transmission Date: 20160305
  Serious: Yes (Hospitalization)
  Sender: FDA-Public Use
  Company Number: None

PATIENT
  Age: 50 Year
  Sex: Female

DRUGS (4)
  1. IFOSFAMIDE 1G MYLAN [Suspect]
     Active Substance: IFOSFAMIDE
     Indication: SARCOMA
     Dosage: 4.45G/3 DOSES ?QD?INTRAVENOUS
     Route: 042
     Dates: start: 20151102, end: 20151104
  2. DOXORUBICIN [Concomitant]
     Active Substance: DOXORUBICIN
  3. PAZOPANIB DEX/ZOFRAN [Concomitant]
  4. IFOSFAMIDE 3G MYLAN [Suspect]
     Active Substance: IFOSFAMIDE
     Indication: SARCOMA
     Dosage: 4.45G/3 DOSES ?QD?INTRAVENOUS
     Route: 042
     Dates: start: 20151102, end: 20151104

REACTIONS (4)
  - Neurotoxicity [None]
  - Disorientation [None]
  - Impulsive behaviour [None]
  - Anxiety [None]

NARRATIVE: CASE EVENT DATE: 20151102
